FAERS Safety Report 19648152 (Version 1)
Quarter: 2021Q3

REPORT INFORMATION
  Report Type: Spontaneous
  Country: US (occurrence: US)
  Receive Date: 20210803
  Receipt Date: 20210803
  Transmission Date: 20211014
  Serious: Yes (Hospitalization)
  Sender: FDA-Public Use
  Company Number: US-FARMAPROD-202107-1154

PATIENT
  Age: 86 Year
  Sex: Female

DRUGS (7)
  1. OXERVATE [Suspect]
     Active Substance: CENEGERMIN-BKBJ
     Indication: NEUROTROPHIC KERATOPATHY
     Route: 047
     Dates: start: 20210611
  2. LANTUS [Concomitant]
     Active Substance: INSULIN GLARGINE
     Dosage: 100/ML VIAL
  3. HUMALOG [Concomitant]
     Active Substance: INSULIN LISPRO
     Dosage: 100/ML CARTRIDGE
  4. LATANOPROST. [Concomitant]
     Active Substance: LATANOPROST
  5. BESIVANCE [Concomitant]
     Active Substance: BESIFLOXACIN
  6. PROLENSA [Concomitant]
     Active Substance: BROMFENAC SODIUM
  7. ARTIFICIAL TEARS [Concomitant]
     Active Substance: GLYCERIN\HYPROMELLOSES\POLYETHYLENE GLYCOL 400

REACTIONS (4)
  - Cerebral haemorrhage [Unknown]
  - Eye pain [Unknown]
  - Mental status changes [Unknown]
  - Eye discharge [Unknown]

NARRATIVE: CASE EVENT DATE: 20210719
